FAERS Safety Report 12684954 (Version 4)
Quarter: 2016Q4

REPORT INFORMATION
  Report Type: Spontaneous
  Country: US (occurrence: US)
  Receive Date: 20160825
  Receipt Date: 20161102
  Transmission Date: 20170207
  Serious: Yes (Other)
  Sender: FDA-Public Use
  Company Number: US-ASTELLAS-2016US031762

PATIENT
  Age: 65 Year
  Sex: Male

DRUGS (1)
  1. XTANDI [Suspect]
     Active Substance: ENZALUTAMIDE
     Indication: PROSTATE CANCER
     Route: 048
     Dates: start: 20160726

REACTIONS (7)
  - Peripheral swelling [Unknown]
  - Fluid retention [Unknown]
  - Weight increased [Unknown]
  - Joint swelling [Unknown]
  - Hot flush [Not Recovered/Not Resolved]
  - Night sweats [Unknown]
  - Flushing [Unknown]

NARRATIVE: CASE EVENT DATE: 201608
